FAERS Safety Report 10645256 (Version 1)
Quarter: 2014Q4

REPORT INFORMATION
  Report Type: Report from Study
  Country: DE (occurrence: DE)
  Receive Date: 20141211
  Receipt Date: 20141211
  Transmission Date: 20150529
  Serious: Yes (Hospitalization)
  Sender: FDA-Public Use
  Company Number: DE-ABBVIE-14K-062-1318935-00

PATIENT
  Age: 44 Year
  Sex: Male

DRUGS (2)
  1. DEKRISTOL [Concomitant]
     Active Substance: CHOLECALCIFEROL
     Indication: PRODUCT USED FOR UNKNOWN INDICATION
  2. HUMIRA [Suspect]
     Active Substance: ADALIMUMAB
     Indication: PSORIATIC ARTHROPATHY
     Route: 058
     Dates: start: 20130102

REACTIONS (2)
  - Musculoskeletal pain [Not Recovered/Not Resolved]
  - Arthroscopy [Not Recovered/Not Resolved]

NARRATIVE: CASE EVENT DATE: 201411
